FAERS Safety Report 15322024 (Version 1)
Quarter: 2018Q3

REPORT INFORMATION
  Report Type: Spontaneous
  Country: US (occurrence: US)
  Receive Date: 20180821
  Receipt Date: 20180821
  Transmission Date: 20181010
  Serious: No
  Sender: FDA-Public Use
  Company Number: None

PATIENT
  Age: 84 Year
  Sex: Female
  Weight: 65.77 kg

DRUGS (8)
  1. CAL CITRATE [Concomitant]
  2. ASPIRIN 81 MG [Concomitant]
     Active Substance: ASPIRIN
  3. CRANBERRY EXTRACT [Concomitant]
     Active Substance: CRANBERRY JUICE
  4. VITAMIN D3 [Concomitant]
     Active Substance: CHOLECALCIFEROL
  5. NITROFURANTOIN MACROCRYSTALS [Suspect]
     Active Substance: NITROFURANTOIN
     Indication: INFECTION
     Dosage: ?          QUANTITY:1 DF DOSAGE FORM;?
     Route: 048
     Dates: start: 20180718, end: 20180725
  6. PROGESTERONE. [Concomitant]
     Active Substance: PROGESTERONE
  7. FISH OIL [Concomitant]
     Active Substance: FISH OIL
  8. ESTROGEN [Concomitant]
     Active Substance: ESTROGENS

REACTIONS (6)
  - Asthenia [None]
  - Fatigue [None]
  - Abdominal discomfort [None]
  - Decreased appetite [None]
  - Nausea [None]
  - Diarrhoea [None]

NARRATIVE: CASE EVENT DATE: 20180717
